FAERS Safety Report 4334155-4 (Version None)
Quarter: 2004Q2

REPORT INFORMATION
  Report Type: 
  Country: None (occurrence: None)
  Receive Date: 20040402
  Receipt Date: 20040322
  Transmission Date: 20050107
  Serious: Yes (Hospitalization, Other)
  Sender: FDA-Public Use
  Company Number: 2004JP000647

PATIENT
  Age: 5 Year
  Sex: Male
  Weight: 15 kg

DRUGS (5)
  1. PROGRAF [Suspect]
     Indication: BONE MARROW TRANSPLANT
     Dosage: INTRAVENOUS
     Route: 042
     Dates: start: 20040320, end: 20040321
  2. DIFLUCAN [Concomitant]
  3. ARASENA A (VIDARABINE) [Concomitant]
  4. FIRSTCIN (CEFOZOPRAN HYDROCHLORIDE) [Concomitant]
  5. SOLU-CORTEF [Concomitant]

REACTIONS (6)
  - BLINDNESS CORTICAL [None]
  - CONVULSION [None]
  - EYE PAIN [None]
  - HEADACHE [None]
  - HYPERTENSION [None]
  - STEM CELL TRANSPLANT [None]
